FAERS Safety Report 12954372 (Version 1)
Quarter: 2016Q4

REPORT INFORMATION
  Report Type: Spontaneous
  Country: US (occurrence: US)
  Receive Date: 20161117
  Receipt Date: 20161117
  Transmission Date: 20170207
  Serious: Yes (Hospitalization)
  Sender: FDA-Public Use
  Company Number: None

PATIENT
  Age: 35 Year
  Sex: Male
  Weight: 116.1 kg

DRUGS (3)
  1. CLOZAPINE (CARACO) [Suspect]
     Active Substance: CLOZAPINE
     Indication: SCHIZOPHRENIA
     Route: 048
     Dates: start: 20160620, end: 20160714
  2. ATOMOXETINE [Suspect]
     Active Substance: ATOMOXETINE
     Indication: ATTENTION DEFICIT/HYPERACTIVITY DISORDER
     Route: 048
     Dates: start: 20160412, end: 20160715
  3. CLOZAPINE (CARACO) [Suspect]
     Active Substance: CLOZAPINE
     Indication: SCHIZOAFFECTIVE DISORDER
     Route: 048
     Dates: start: 20160620, end: 20160714

REACTIONS (5)
  - Palpitations [None]
  - Angina pectoris [None]
  - Eosinophilic myocarditis [None]
  - Headache [None]
  - Tachycardia [None]

NARRATIVE: CASE EVENT DATE: 20160714
